FAERS Safety Report 7749754-7 (Version None)
Quarter: 2011Q3

REPORT INFORMATION
  Report Type: 
  Country: None (occurrence: None)
  Receive Date: 20110914
  Receipt Date: 20110908
  Transmission Date: 20111222
  Serious: Yes (Life-Threatening, Hospitalization, Other)
  Sender: FDA-Public Use
  Company Number: AT-BRISTOL-MYERS SQUIBB COMPANY-15727670

PATIENT
  Age: 46 Year
  Sex: Male

DRUGS (3)
  1. DICLOFENAC SODIUM [Concomitant]
     Dates: start: 20050101
  2. METHYLPREDNISOLONE [Concomitant]
     Dates: start: 20110507
  3. IPILIMUMAB [Suspect]
     Indication: MALIGNANT MELANOMA
     Dosage: INTERRUPTED ON 28APR11,29APR2011 297MG,3 WKLY
     Dates: start: 20110317, end: 20110429

REACTIONS (8)
  - INTESTINAL PERFORATION [None]
  - ABSCESS INTESTINAL [None]
  - DIARRHOEA [None]
  - NEOPLASM MALIGNANT [None]
  - PULMONARY EMBOLISM [None]
  - DEHYDRATION [None]
  - ASTHENIA [None]
  - ABDOMINAL PAIN [None]
